FAERS Safety Report 6508150-0 (Version None)
Quarter: 2009Q4

REPORT INFORMATION
  Report Type: 
  Country: None (occurrence: None)
  Receive Date: 20091221
  Receipt Date: 20091208
  Transmission Date: 20100525
  Serious: Yes (Hospitalization)
  Sender: FDA-Public Use
  Company Number: PHHY2009FR54537

PATIENT
  Age: 75 Year
  Sex: Female

DRUGS (6)
  1. NEORAL [Suspect]
     Indication: FEBRILE BONE MARROW APLASIA
     Dosage: 125 MG, BID
     Dates: start: 20080901, end: 20080922
  2. NEORAL [Suspect]
     Dosage: 100 MG, BID
     Dates: start: 20080926
  3. NILEVAR [Suspect]
     Indication: FEBRILE BONE MARROW APLASIA
     Dosage: 50 MG
     Dates: end: 20080922
  4. ACUPAN [Suspect]
     Indication: FEBRILE BONE MARROW APLASIA
     Dosage: 80 MG DAILY
     Dates: start: 20080919, end: 20080922
  5. ZELITREX                                /DEN/ [Concomitant]
     Indication: FEBRILE BONE MARROW APLASIA
  6. NOXAFIL [Concomitant]
     Indication: FEBRILE BONE MARROW APLASIA

REACTIONS (3)
  - CYTOLYTIC HEPATITIS [None]
  - HEPATIC LESION [None]
  - HYPERBILIRUBINAEMIA [None]
